FAERS Safety Report 4485560-7 (Version None)
Quarter: 2004Q4

REPORT INFORMATION
  Report Type: 
  Country: None (occurrence: None)
  Receive Date: 20041021
  Receipt Date: 20041008
  Transmission Date: 20050328
  Serious: Yes (Other)
  Sender: FDA-Public Use
  Company Number: 2004076149

PATIENT
  Age: 91 Year
  Sex: Male
  Weight: 68.9467 kg

DRUGS (7)
  1. TIKOSYN [Suspect]
     Indication: ATRIAL FIBRILLATION
     Dosage: 500 MCG (250 MCG, 2 IN 1 D), ORAL
     Route: 048
     Dates: start: 20040601
  2. DOXAZOSIN MESYLATE [Concomitant]
  3. METFORMIN HCL [Concomitant]
  4. POTASSIUM (POTASSIUM) [Concomitant]
  5. FUROSEMIDE [Concomitant]
  6. SERTRALINE HCL [Concomitant]
  7. LISINOPRIL [Concomitant]

REACTIONS (2)
  - EPISTAXIS [None]
  - IDIOPATHIC THROMBOCYTOPENIC PURPURA [None]
